FAERS Safety Report 9022472 (Version 2)
Quarter: 2013Q1

REPORT INFORMATION
  Report Type: Report from Study
  Country: US (occurrence: US)
  Receive Date: 20130118
  Receipt Date: 20130227
  Transmission Date: 20140127
  Serious: Yes (Death, Other)
  Sender: FDA-Public Use
  Company Number: US-TEVA-380478USA

PATIENT
  Age: 54 None
  Sex: Male

DRUGS (11)
  1. CLOZAPINE [Suspect]
     Indication: PSYCHOTIC DISORDER
     Dosage: 300 MILLIGRAM DAILY; HS
     Route: 048
  2. BENZTROPINE [Concomitant]
     Dosage: 2 MILLIGRAM DAILY;
     Route: 048
  3. CHLORPROMAZINE [Concomitant]
     Dosage: 200 MILLIGRAM DAILY;
     Route: 048
  4. DIPHENHYDRAMINE [Concomitant]
     Dosage: 150 MILLIGRAM DAILY;
     Route: 048
  5. RISPERIDONE [Concomitant]
     Dosage: 6 MILLIGRAM DAILY;
     Route: 048
  6. FLUOXETINE [Concomitant]
     Dosage: 40 MILLIGRAM DAILY; AM
     Route: 048
  7. PRAZOSIN [Concomitant]
     Dosage: 1 MILLIGRAM DAILY; HS
     Route: 048
  8. DOCUSATE SODIUM [Concomitant]
     Dosage: 200 MILLIGRAM DAILY;
     Route: 048
  9. VITAMIN D [Concomitant]
     Dosage: AM
  10. POLYETHYLENE [Concomitant]
     Dosage: 3350 MG/CAPFUL
     Route: 048
  11. MEGESTROL [Concomitant]
     Dosage: 20 MILLIGRAM DAILY;
     Route: 048

REACTIONS (3)
  - Death [Fatal]
  - Fall [Unknown]
  - Unresponsive to stimuli [Unknown]
